FAERS Safety Report 5716363-0 (Version None)
Quarter: 2008Q2

REPORT INFORMATION
  Report Type: 
  Country: None (occurrence: None)
  Receive Date: 20080424
  Receipt Date: 20080416
  Transmission Date: 20081010
  Serious: Yes (Other)
  Sender: FDA-Public Use
  Company Number: US-ASTRAZENECA-2008UW07802

PATIENT
  Age: 45 Year
  Sex: Female
  Weight: 108.9 kg

DRUGS (5)
  1. ENTOCORT EC [Suspect]
     Indication: COLITIS ULCERATIVE
     Route: 048
  2. MAXZIDE [Concomitant]
  3. XANAX [Concomitant]
  4. KLOR-CON [Concomitant]
  5. VITAMINS [Concomitant]

REACTIONS (3)
  - AGITATION [None]
  - ANXIETY [None]
  - SELF INJURIOUS BEHAVIOUR [None]
